FAERS Safety Report 15342410 (Version 1)
Quarter: 2018Q3

REPORT INFORMATION
  Report Type: Spontaneous
  Country: TH (occurrence: TH)
  Receive Date: 20180902
  Receipt Date: 20180902
  Transmission Date: 20181010
  Serious: Yes (Death)
  Sender: FDA-Public Use
  Company Number: PHHY2018TH080781

PATIENT
  Age: 75 Year
  Sex: Male

DRUGS (2)
  1. PACLITAXEL. [Suspect]
     Active Substance: PACLITAXEL
     Indication: LUNG NEOPLASM MALIGNANT
     Dosage: UNK
     Route: 065
     Dates: start: 201502, end: 201504
  2. CARBOPLATIN. [Suspect]
     Active Substance: CARBOPLATIN
     Indication: LUNG NEOPLASM MALIGNANT
     Dosage: UNK
     Route: 065
     Dates: start: 201502, end: 201504

REACTIONS (7)
  - Atelectasis [Fatal]
  - Lymphadenopathy mediastinal [Fatal]
  - Hilar lymphadenopathy [Fatal]
  - Lymphadenopathy [Fatal]
  - Pulmonary mass [Fatal]
  - Pleural effusion [Fatal]
  - Metastases to liver [Fatal]
